FAERS Safety Report 4998062-6 (Version None)
Quarter: 2006Q2

REPORT INFORMATION
  Report Type: 
  Country: None (occurrence: None)
  Receive Date: 20060510
  Receipt Date: 20060111
  Transmission Date: 20061013
  Serious: Yes (Death, Hospitalization, Other)
  Sender: FDA-Public Use
  Company Number: US-MERCK-0601USA01562

PATIENT
  Age: 75 Year
  Sex: Male
  Weight: 75 kg

DRUGS (10)
  1. VIOXX [Suspect]
     Indication: ARTHRITIS
     Route: 048
     Dates: start: 20000229, end: 20040105
  2. PLAVIX [Concomitant]
     Route: 065
  3. PREVACID [Concomitant]
     Indication: GASTROOESOPHAGEAL REFLUX DISEASE
     Route: 065
  4. ASTELIN [Concomitant]
     Route: 065
  5. ATROVENT [Concomitant]
     Route: 065
  6. DUONEB [Concomitant]
     Route: 065
  7. TYLENOL (CAPLET) [Concomitant]
     Route: 065
  8. ASPIRIN [Concomitant]
     Route: 065
  9. OCUPRESS [Concomitant]
     Indication: GLAUCOMA
     Route: 065
  10. XALATAN [Concomitant]
     Indication: GLAUCOMA
     Route: 065

REACTIONS (10)
  - ACUTE MYOCARDIAL INFARCTION [None]
  - ACUTE RESPIRATORY FAILURE [None]
  - AORTIC ANEURYSM [None]
  - CARDIAC FAILURE CONGESTIVE [None]
  - CATARACT OPERATION [None]
  - CORONARY ARTERY DISEASE [None]
  - HYPERGLYCAEMIA [None]
  - KNEE OPERATION [None]
  - MYOCARDIAL INFARCTION [None]
  - NEOPLASM MALIGNANT [None]
